FAERS Safety Report 18000645 (Version 2)
Quarter: 2020Q3

REPORT INFORMATION
  Report Type: Spontaneous
  Country: US (occurrence: US)
  Receive Date: 20200709
  Receipt Date: 20200901
  Transmission Date: 20201103
  Serious: Yes (Hospitalization, Other)
  Sender: FDA-Public Use
  Company Number: US-GILEAD-2020-0478433

PATIENT
  Age: 40 Year
  Sex: Male

DRUGS (3)
  1. TIVICAY [Concomitant]
     Active Substance: DOLUTEGRAVIR SODIUM
  2. ABACAVIR + LAMIVUDIN [Concomitant]
     Active Substance: ABACAVIR\LAMIVUDINE
  3. TRUVADA [Suspect]
     Active Substance: EMTRICITABINE\TENOFOVIR DISOPROXIL FUMARATE
     Indication: HIV INFECTION
     Dosage: UNK
     Route: 048
     Dates: start: 2001, end: 2007

REACTIONS (5)
  - Renal failure [Unknown]
  - Acute kidney injury [Not Recovered/Not Resolved]
  - Chronic kidney disease [Not Recovered/Not Resolved]
  - Bone density decreased [Unknown]
  - Osteopenia [Not Recovered/Not Resolved]

NARRATIVE: CASE EVENT DATE: 2005
